FAERS Safety Report 6840211-9 (Version None)
Quarter: 2010Q3

REPORT INFORMATION
  Report Type: 
  Country: None (occurrence: None)
  Receive Date: 20100713
  Receipt Date: 20100713
  Transmission Date: 20110219
  Serious: Yes (Hospitalization, Other)
  Sender: FDA-Public Use
  Company Number: None

PATIENT
  Age: 85 Year
  Sex: Male
  Weight: 69.4 kg

DRUGS (2)
  1. ALTAPLASE [Suspect]
     Indication: VASCULAR GRAFT OCCLUSION
     Dosage: 0.5 MG PER HOUR IV
     Route: 042
     Dates: start: 20100706, end: 20100707
  2. HEPARIN [Suspect]
     Indication: ATRIAL FIBRILLATION
     Dosage: 600 UNITS PER HOUR IV
     Route: 042
     Dates: start: 20100704, end: 20100707

REACTIONS (2)
  - ANAEMIA [None]
  - HAEMORRHAGE [None]
